FAERS Safety Report 16942767 (Version 2)
Quarter: 2020Q1

REPORT INFORMATION
  Report Type: Report from Study
  Country: AU (occurrence: AU)
  Receive Date: 20191021
  Receipt Date: 20200124
  Transmission Date: 20200409
  Serious: Yes (Other)
  Sender: FDA-Public Use
  Company Number: PHHY2015AU157957

PATIENT
  Age: 55 Year
  Sex: Female

DRUGS (1)
  1. GILENYA [Suspect]
     Active Substance: FINGOLIMOD HYDROCHLORIDE
     Indication: MULTIPLE SCLEROSIS
     Dosage: QD
     Route: 048
     Dates: start: 20150901

REACTIONS (4)
  - White blood cell count decreased [Unknown]
  - Eczema [Not Recovered/Not Resolved]
  - Lymphocyte count decreased [Unknown]
  - Influenza [Unknown]

NARRATIVE: CASE EVENT DATE: 20150904
